FAERS Safety Report 5394391-5 (Version None)
Quarter: 2007Q3

REPORT INFORMATION
  Report Type: 
  Country: None (occurrence: None)
  Receive Date: 20070723
  Receipt Date: 20070713
  Transmission Date: 20080115
  Serious: Yes (Life-Threatening, Hospitalization, Other)
  Sender: FDA-Public Use
  Company Number: AU-SANOFI-SYNTHELABO-F01200700654

PATIENT
  Sex: Female

DRUGS (8)
  1. ASTRIX [Concomitant]
     Dates: start: 20061207
  2. LIPITOR [Concomitant]
     Dates: start: 20061121
  3. PLENDIL [Concomitant]
     Dates: start: 20061123
  4. METFORMIN HCL [Concomitant]
     Dates: start: 20070215, end: 20070407
  5. BEVACIZUMAB [Suspect]
     Route: 042
  6. EZETIMIBE [Concomitant]
     Dates: start: 20061121
  7. CAPECITABINE [Suspect]
     Route: 048
  8. OXALIPLATIN [Suspect]
     Indication: COLORECTAL CANCER METASTATIC
     Route: 042

REACTIONS (4)
  - DIARRHOEA [None]
  - METABOLIC ACIDOSIS [None]
  - OESOPHAGITIS [None]
  - SEPSIS [None]
